FAERS Safety Report 12670687 (Version 1)
Quarter: 2016Q3

REPORT INFORMATION
  Report Type: Other
  Country: US (occurrence: US)
  Receive Date: 20160822
  Receipt Date: 20160822
  Transmission Date: 20161109
  Serious: Yes (Other)
  Sender: FDA-Public Use
  Company Number: US-LUPIN PHARMACEUTICALS INC.-2016-02025

PATIENT
  Age: 14 Year
  Sex: Female

DRUGS (2)
  1. VANCOMYCIN [Suspect]
     Active Substance: VANCOMYCIN
     Dosage: 7.5 MG/KG PER HOUR FOR 2 HOURS
     Route: 042
  2. VANCOMYCIN [Suspect]
     Active Substance: VANCOMYCIN
     Indication: CELLULITIS ORBITAL
     Dosage: 620-MG (15 MG/KG PER DOSE) INFUSION FOR 1 HOUR
     Route: 042

REACTIONS (1)
  - Red man syndrome [Recovered/Resolved]
